FAERS Safety Report 8281699-9 (Version None)
Quarter: 2012Q2

REPORT INFORMATION
  Report Type: 
  Country: None (occurrence: None)
  Receive Date: 20120413
  Receipt Date: 20120410
  Transmission Date: 20120825
  Serious: No
  Sender: FDA-Public Use
  Company Number: US-PFIZER INC-2012070091

PATIENT
  Sex: Female
  Weight: 76.19 kg

DRUGS (17)
  1. MIDODRINE HYDROCHLORIDE [Concomitant]
     Dosage: 2.5 MG, UNK
  2. MIRALAX [Concomitant]
  3. TRAMADOL [Concomitant]
  4. CHANTIX [Suspect]
     Dosage: 1 MG, 2X/DAY
     Route: 048
     Dates: start: 20120301, end: 20120313
  5. TOPIRAMATE [Concomitant]
  6. METOPROLOL [Concomitant]
  7. TAMSULOSIN [Concomitant]
     Dosage: 0.4 MG, UNK
  8. PROMETHAZINE [Concomitant]
  9. METFORMIN [Concomitant]
  10. MIDODRINE [Concomitant]
     Indication: HYPOTENSION
     Dosage: 10 MG, AS NEEDED
  11. MECLIZINE [Concomitant]
     Dosage: 25 MG, UNK
  12. CHANTIX [Suspect]
     Indication: SMOKING CESSATION THERAPY
     Dosage: 0.5 MG, DAILY
     Route: 048
     Dates: start: 20120228, end: 20120301
  13. IPRATROPIUM [Concomitant]
     Indication: HYPERSENSITIVITY
     Dosage: UNK
     Route: 045
  14. DICYCLOMINE [Concomitant]
     Dosage: 10 MG, UNK
  15. SINGULAIR [Concomitant]
     Dosage: 10 MG, UNK
  16. CYCLOBENZAPRINE [Concomitant]
  17. NEXIUM [Concomitant]

REACTIONS (1)
  - BLOOD PRESSURE DECREASED [None]
